FAERS Safety Report 18558697 (Version 3)
Quarter: 2020Q4

REPORT INFORMATION
  Report Type: Spontaneous
  Country: GB (occurrence: GB)
  Receive Date: 20201130
  Receipt Date: 20201201
  Transmission Date: 20210114
  Serious: Yes (Other)
  Sender: FDA-Public Use
  Company Number: GB-PFIZER INC-2020467047

PATIENT
  Age: 40 Year
  Sex: Female
  Weight: 45 kg

DRUGS (1)
  1. BACTERIOSTATIC SODIUM CHLORIDE [Suspect]
     Active Substance: SODIUM CHLORIDE
     Indication: UTERINE CERVIX DILATION PROCEDURE
     Dosage: UNK (0.9%)

REACTIONS (3)
  - Fluid overload [Unknown]
  - Acute pulmonary oedema [Recovering/Resolving]
  - Acidosis hyperchloraemic [Unknown]
